FAERS Safety Report 19391314 (Version 1)
Quarter: 2021Q2

REPORT INFORMATION
  Report Type: Report from Study
  Country: US (occurrence: US)
  Receive Date: 20210608
  Receipt Date: 20210608
  Transmission Date: 20210717
  Serious: Yes (Hospitalization)
  Sender: FDA-Public Use
  Company Number: US-JNJFOC-20210603488

PATIENT
  Age: 56 Year
  Sex: Female

DRUGS (3)
  1. SPRAVATO [Suspect]
     Active Substance: ESKETAMINE
     Dosage: 84 MG, 8 TOTAL DOSES
     Dates: start: 20210430, end: 20210521
  2. SPRAVATO [Suspect]
     Active Substance: ESKETAMINE
     Indication: DEPRESSION
     Dosage: 56 MG, 1 TOTAL DOSE
     Dates: start: 20210427, end: 20210427
  3. SPRAVATO [Suspect]
     Active Substance: ESKETAMINE
     Dosage: CURRENT TREATMENT SESSION
     Dates: start: 20210528, end: 20210528

REACTIONS (3)
  - Gait disturbance [Recovered/Resolved]
  - Nausea [Recovered/Resolved]
  - Dizziness [Recovered/Resolved]

NARRATIVE: CASE EVENT DATE: 20210528
